FAERS Safety Report 9421747 (Version 2)
Quarter: 2016Q1

REPORT INFORMATION
  Report Type: Spontaneous
  Country: US (occurrence: US)
  Receive Date: 20130724
  Receipt Date: 20160105
  Transmission Date: 20160526
  Serious: Yes (Hospitalization)
  Sender: FDA-Public Use
  Company Number: US-BAYER-2013-088175

PATIENT
  Age: 29 Year
  Sex: Female
  Weight: 102.95 kg

DRUGS (5)
  1. YASMIN [Suspect]
     Active Substance: DROSPIRENONE\ETHINYL ESTRADIOL
  2. BENADRYL [Concomitant]
     Active Substance: DIPHENHYDRAMINE HYDROCHLORIDE
  3. OCELLA [Suspect]
     Active Substance: DROSPIRENONE\ETHINYL ESTRADIOL
  4. MOTRIN [Concomitant]
     Active Substance: IBUPROFEN
  5. XANAX [Concomitant]
     Active Substance: ALPRAZOLAM

REACTIONS (2)
  - Cerebrovascular accident [Recovering/Resolving]
  - Cerebral artery embolism [Recovering/Resolving]

NARRATIVE: CASE EVENT DATE: 20111102
